FAERS Safety Report 18216669 (Version 1)
Quarter: 2020Q3

REPORT INFORMATION
  Report Type: Spontaneous
  Country: IE (occurrence: IE)
  Receive Date: 20200901
  Receipt Date: 20200901
  Transmission Date: 20201103
  Serious: Yes (Life-Threatening, Hospitalization)
  Sender: FDA-Public Use
  Company Number: IE-TEVA-2020-IE-1820771

PATIENT
  Age: 52 Year
  Sex: Male

DRUGS (2)
  1. ESCITALOPRAM [Suspect]
     Active Substance: ESCITALOPRAM OXALATE
     Indication: DEPRESSION
     Dosage: RECENT INCREASED FROM 15MG TO 20MG DAILY, UNIT DOSE: 15 MG
     Route: 065
  2. ESCITALOPRAM [Suspect]
     Active Substance: ESCITALOPRAM OXALATE
     Dosage: RECENT INCREASE FROM 15MG DAILY, UNIT DOSE: 20 MG
     Route: 048

REACTIONS (2)
  - Suicide attempt [Not Recovered/Not Resolved]
  - Multiple injuries [Not Recovered/Not Resolved]

NARRATIVE: CASE EVENT DATE: 20200726
